FAERS Safety Report 7428838-7 (Version None)
Quarter: 2011Q2

REPORT INFORMATION
  Report Type: 
  Country: None (occurrence: None)
  Receive Date: 20110421
  Receipt Date: 20110328
  Transmission Date: 20111010
  Serious: Yes (Hospitalization)
  Sender: FDA-Public Use
  Company Number: PHHY2011JP22454

PATIENT
  Age: 57 Year
  Sex: Female

DRUGS (8)
  1. CARBAMAZEPINE [Suspect]
     Indication: EPILEPSY
     Dosage: 600 MG, UNK
     Route: 048
  2. VALPROIC ACID [Concomitant]
     Dosage: UNK
     Route: 048
  3. HALOPERIDOL [Concomitant]
     Route: 048
  4. RISPERIDONE [Concomitant]
     Route: 048
  5. QUETIAPINE FUMARATE [Concomitant]
     Route: 048
  6. LEVOMEPROMAZINE MALEATE [Concomitant]
     Route: 048
  7. OLANZAPINE [Concomitant]
     Dosage: UNK
     Route: 048
  8. LITHIUM CARBONATE [Concomitant]
     Route: 048

REACTIONS (8)
  - ABNORMAL BEHAVIOUR [None]
  - DISTURBANCE IN ATTENTION [None]
  - SOMATIC HALLUCINATION [None]
  - LOGORRHOEA [None]
  - IRRITABILITY [None]
  - PERSONALITY CHANGE DUE TO A GENERAL MEDICAL CONDITION [None]
  - IMPULSIVE BEHAVIOUR [None]
  - BIPOLAR DISORDER [None]
